FAERS Safety Report 5803614-7 (Version None)
Quarter: 2008Q3

REPORT INFORMATION
  Report Type: 
  Country: None (occurrence: None)
  Receive Date: 20080708
  Receipt Date: 20080626
  Transmission Date: 20090109
  Serious: Yes (Life-Threatening, Hospitalization, Other)
  Sender: FDA-Public Use
  Company Number: JP-PFIZER INC-2008041901

PATIENT
  Sex: Male

DRUGS (5)
  1. DETRUSITOL SR [Suspect]
     Indication: HYPERTONIC BLADDER
     Route: 048
     Dates: start: 20070101, end: 20071026
  2. DETRUSITOL SR [Suspect]
     Indication: PROSTATE CANCER
  3. CASODEX [Suspect]
     Indication: PROSTATE CANCER
     Route: 048
     Dates: start: 20040202, end: 20071026
  4. ZOLADEX [Suspect]
     Indication: PROSTATE CANCER
     Dosage: DAILY DOSE:3.6MG-FREQ:MONTHLY
     Route: 058
     Dates: start: 20040216, end: 20071026
  5. AMLODIPINE [Suspect]
     Indication: HYPERTENSION
     Route: 048
     Dates: start: 20070101, end: 20071026

REACTIONS (3)
  - ANAEMIA [None]
  - INTERSTITIAL LUNG DISEASE [None]
  - LYMPHOCYTE STIMULATION TEST POSITIVE [None]
